FAERS Safety Report 16193607 (Version 2)
Quarter: 2019Q2

REPORT INFORMATION
  Report Type: Spontaneous
  Country: IE (occurrence: IE)
  Receive Date: 20190413
  Receipt Date: 20190425
  Transmission Date: 20190711
  Serious: Yes (Hospitalization, Disabling, Other)
  Sender: FDA-Public Use
  Company Number: IE-TEVA-2019-IE-1035232

PATIENT
  Age: 91 Year
  Sex: Female

DRUGS (10)
  1. SENNA (G) [Concomitant]
     Dosage: TWO AT NIGHT
     Route: 048
  2. NEURONTIN [Suspect]
     Active Substance: GABAPENTIN
     Dosage: 100 MILLIGRAM DAILY;
     Route: 048
  3. NEURONTIN [Suspect]
     Active Substance: GABAPENTIN
  4. MEMANTINE (G) [Concomitant]
     Dosage: 20 MILLIGRAM DAILY; NIGHT
     Route: 048
  5. SEROQUEL [Suspect]
     Active Substance: QUETIAPINE FUMARATE
     Dosage: 75MG NIGHT, 50MG MORNING
     Route: 048
  6. TRAVATAN [Concomitant]
     Active Substance: TRAVOPROST
     Dosage: ONE AT NIGHT
  7. DONEPEZIL (G) [Concomitant]
     Dosage: 10 MILLIGRAM DAILY; NIGHT
     Route: 048
  8. LACTULOSE (GENERIC) [Concomitant]
     Route: 048
  9. HALOPERIDOL 5MG/ML SOLUTION FOR INJECTION [Suspect]
     Active Substance: HALOPERIDOL
     Dosage: UNKNOWN
     Route: 065
  10. SEROQUEL [Suspect]
     Active Substance: QUETIAPINE FUMARATE
     Dates: end: 20180508

REACTIONS (19)
  - Eye discharge [Not Recovered/Not Resolved]
  - Coordination abnormal [Not Recovered/Not Resolved]
  - Speech disorder [Not Recovered/Not Resolved]
  - Emotional disorder [Not Recovered/Not Resolved]
  - Coma [Not Recovered/Not Resolved]
  - Skin exfoliation [Not Recovered/Not Resolved]
  - Mobility decreased [Not Recovered/Not Resolved]
  - Somnolence [Not Recovered/Not Resolved]
  - General physical health deterioration [Not Recovered/Not Resolved]
  - Loss of personal independence in daily activities [Not Recovered/Not Resolved]
  - Tremor [Not Recovered/Not Resolved]
  - Dysarthria [Not Recovered/Not Resolved]
  - Emotional distress [Not Recovered/Not Resolved]
  - Wound [Not Recovered/Not Resolved]
  - Skin injury [Not Recovered/Not Resolved]
  - Contusion [Not Recovered/Not Resolved]
  - Depressed mood [Not Recovered/Not Resolved]
  - Wound haemorrhage [Not Recovered/Not Resolved]
  - Condition aggravated [Not Recovered/Not Resolved]

NARRATIVE: CASE EVENT DATE: 201807
